FAERS Safety Report 4680795-2 (Version None)
Quarter: 2005Q2

REPORT INFORMATION
  Report Type: 
  Country: None (occurrence: None)
  Receive Date: 20050601
  Receipt Date: 20050524
  Transmission Date: 20051028
  Serious: Yes (Hospitalization)
  Sender: FDA-Public Use
  Company Number: 2005-128662-NL

PATIENT
  Age: 80 Year
  Sex: Female

DRUGS (9)
  1. MIRTAZAPINE [Suspect]
     Indication: DEPRESSION
     Dosage: 30 MG
     Route: 048
     Dates: start: 20050301, end: 20050330
  2. ATORVASTATIN CALCIUM [Concomitant]
  3. ALENDRONATE SODIUM [Concomitant]
  4. CALCHICEW D 3 FORTE [Concomitant]
  5. QUININE SULPHATE [Concomitant]
  6. RAMIPRIL [Concomitant]
  7. FRUMIL [Concomitant]
  8. METFORMIN HCL [Concomitant]
  9. LANSOPRAZOLE [Concomitant]

REACTIONS (1)
  - CHOLESTASIS [None]
